FAERS Safety Report 25383865 (Version 1)
Quarter: 2025Q2

REPORT INFORMATION
  Report Type: Spontaneous
  Country: JP (occurrence: JP)
  Receive Date: 20250602
  Receipt Date: 20250602
  Transmission Date: 20250716
  Serious: Yes (Death)
  Sender: ROCHE
  Company Number: JP-CHUGAI-2025017314

PATIENT
  Age: 8 Decade
  Sex: Female

DRUGS (2)
  1. PHESGO [Suspect]
     Active Substance: HYALURONIDASE-ZZXF\PERTUZUMAB\TRASTUZUMAB
     Indication: Breast cancer
     Route: 058
  2. ABRAXANE [Concomitant]
     Active Substance: PACLITAXEL
     Indication: Breast cancer
     Route: 042

REACTIONS (2)
  - Respiratory symptom [Fatal]
  - Hepatic function abnormal [Not Recovered/Not Resolved]
